FAERS Safety Report 9748663 (Version 1)
Quarter: 2013Q4

REPORT INFORMATION
  Report Type: Spontaneous
  Country: US (occurrence: US)
  Receive Date: 20131212
  Receipt Date: 20131212
  Transmission Date: 20140711
  Serious: Yes (Other)
  Sender: FDA-Public Use
  Company Number: US-ASTELLAS-2013US012723

PATIENT
  Age: 80 Year
  Sex: Male

DRUGS (2)
  1. MYRBETRIQ [Suspect]
     Indication: POLLAKIURIA
     Dosage: 50 MG, UID/QD
     Route: 048
     Dates: start: 201311
  2. MYRBETRIQ [Suspect]
     Indication: POST PROCEDURAL SWELLING

REACTIONS (4)
  - Intentional drug misuse [Unknown]
  - Drug ineffective [Unknown]
  - Off label use [Unknown]
  - Blood glucose increased [None]
